FAERS Safety Report 4290595-3 (Version None)
Quarter: 2004Q1

REPORT INFORMATION
  Report Type: 
  Country: None (occurrence: None)
  Receive Date: 20040209
  Receipt Date: 20040128
  Transmission Date: 20041129
  Serious: Yes (Other)
  Sender: FDA-Public Use
  Company Number: US-JNJFOC-20031100562

PATIENT
  Age: 40 Year
  Sex: Female
  Weight: 92.0802 kg

DRUGS (6)
  1. REMICADE [Suspect]
     Indication: RHEUMATOID ARTHRITIS
     Dosage: 300 MG INTRAVENOUS
     Route: 042
     Dates: start: 20031023
  2. METHOTREXATE SODIUM [Concomitant]
  3. ARAVA [Concomitant]
  4. FOLIC ACID [Concomitant]
  5. CELEBREX [Concomitant]
  6. ACETAMINOPHEN [Concomitant]

REACTIONS (6)
  - DIZZINESS [None]
  - FACIAL BONES FRACTURE [None]
  - FALL [None]
  - HEAD INJURY [None]
  - SKIN LACERATION [None]
  - SYNCOPE [None]
